FAERS Safety Report 15827170 (Version 1)
Quarter: 2019Q1

REPORT INFORMATION
  Report Type: Spontaneous
  Country: DE (occurrence: DE)
  Receive Date: 20190115
  Receipt Date: 20190115
  Transmission Date: 20190417
  Serious: Yes (Hospitalization, Other)
  Sender: FDA-Public Use
  Company Number: PHHY2019DE003096

PATIENT
  Age: 67 Year
  Sex: Male

DRUGS (2)
  1. GILENYA [Concomitant]
     Active Substance: FINGOLIMOD HYDROCHLORIDE
     Indication: PRODUCT USED FOR UNKNOWN INDICATION
     Dosage: UNK
     Route: 065
  2. INTERFERON BETA-1B [Suspect]
     Active Substance: INTERFERON BETA-1B
     Indication: MULTIPLE SCLEROSIS
     Dosage: 250 UG, QOD
     Route: 058
     Dates: start: 20180723, end: 20180909

REACTIONS (19)
  - Multiple sclerosis relapse [Recovering/Resolving]
  - Hypotonia [Unknown]
  - Pain [Unknown]
  - Renal failure [Unknown]
  - Cognitive disorder [Unknown]
  - Time perception altered [Unknown]
  - Pyrexia [Unknown]
  - Back pain [Not Recovered/Not Resolved]
  - Bone abscess [Unknown]
  - Sepsis [Unknown]
  - Bladder disorder [Unknown]
  - Gait disturbance [Not Recovered/Not Resolved]
  - Prosopagnosia [Unknown]
  - Gait disturbance [Unknown]
  - Cognitive disorder [Unknown]
  - Nervous system disorder [Unknown]
  - Laboratory test abnormal [Unknown]
  - Spinal column stenosis [Unknown]
  - Pollakiuria [Not Recovered/Not Resolved]

NARRATIVE: CASE EVENT DATE: 20180808
